FAERS Safety Report 25095759 (Version 1)
Quarter: 2025Q1

REPORT INFORMATION
  Report Type: Spontaneous
  Country: CN (occurrence: CN)
  Receive Date: 20250319
  Receipt Date: 20250319
  Transmission Date: 20250409
  Serious: Yes (Life-Threatening, Hospitalization, Other)
  Sender: STRIDES
  Company Number: CN-STRIDES ARCOLAB LIMITED-2025SP003415

PATIENT
  Age: 45 Year
  Sex: Male

DRUGS (10)
  1. GABAPENTIN [Suspect]
     Active Substance: GABAPENTIN
     Indication: Guillain-Barre syndrome
  2. PREDNISONE [Suspect]
     Active Substance: PREDNISONE
     Indication: Crohn^s disease
     Route: 065
     Dates: start: 2005
  3. AZATHIOPRINE [Suspect]
     Active Substance: AZATHIOPRINE
     Indication: Crohn^s disease
     Route: 065
     Dates: start: 2005
  4. ACYCLOVIR [Suspect]
     Active Substance: ACYCLOVIR
     Indication: Cytomegalovirus infection
     Route: 065
     Dates: start: 2014
  5. FOLIC ACID [Suspect]
     Active Substance: FOLIC ACID
     Indication: Guillain-Barre syndrome
     Dates: start: 2014
  6. VITAMIN B1 [Suspect]
     Active Substance: THIAMINE HYDROCHLORIDE
     Indication: Guillain-Barre syndrome
     Route: 030
     Dates: start: 2014
  7. METHYLCOBALAMIN [Suspect]
     Active Substance: METHYLCOBALAMIN
     Indication: Guillain-Barre syndrome
     Route: 065
     Dates: start: 2014
  8. INFLIXIMAB [Concomitant]
     Active Substance: INFLIXIMAB
     Indication: Crohn^s disease
     Route: 065
     Dates: start: 201306
  9. WARFARIN [Concomitant]
     Active Substance: WARFARIN
     Indication: Anticoagulant therapy
     Route: 065
  10. LEVOTHYROXINE [Concomitant]
     Active Substance: LEVOTHYROXINE
     Indication: Primary hypothyroidism
     Route: 065

REACTIONS (4)
  - Condition aggravated [Unknown]
  - Drug ineffective for unapproved indication [Unknown]
  - Treatment noncompliance [Unknown]
  - Off label use [Unknown]

NARRATIVE: CASE EVENT DATE: 20050101
